FAERS Safety Report 24199969 (Version 1)
Quarter: 2024Q3

REPORT INFORMATION
  Report Type: Spontaneous
  Country: DE (occurrence: DE)
  Receive Date: 20240812
  Receipt Date: 20240812
  Transmission Date: 20241016
  Serious: Yes (Hospitalization)
  Sender: AUROBINDO
  Company Number: DE-002147023-NVSC2024DE152760

PATIENT
  Sex: Female

DRUGS (2)
  1. LETROZOLE [Suspect]
     Active Substance: LETROZOLE
     Indication: Hormone receptor positive HER2 negative breast cancer
     Dosage: 2.5 MILLIGRAM, ONCE A DAY 2.5 MG, QD
     Route: 048
     Dates: start: 20190208, end: 20220404
  2. KISQALI [Suspect]
     Active Substance: RIBOCICLIB
     Indication: Hormone receptor positive HER2 negative breast cancer
     Dosage: 600 MG, QD (SCHEMA 21 DAYS INTAKE, 7 DAYS PAUSE)
     Route: 048
     Dates: start: 20190208, end: 20220404

REACTIONS (1)
  - Humerus fracture [Recovered/Resolved]

NARRATIVE: CASE EVENT DATE: 20240630
